FAERS Safety Report 7256615-9 (Version None)
Quarter: 2011Q1

REPORT INFORMATION
  Report Type: 
  Country: None (occurrence: None)
  Receive Date: 20110129
  Receipt Date: 20100805
  Transmission Date: 20110831
  Serious: No
  Sender: FDA-Public Use
  Company Number: US-ABBOTT-10P-163-0662545-00

PATIENT
  Sex: Female

DRUGS (2)
  1. SYMPONY [Concomitant]
     Indication: PRODUCT USED FOR UNKNOWN INDICATION
     Dosage: 1 DOSE 30 DAYS AGO
  2. HUMIRA [Suspect]
     Indication: RHEUMATOID ARTHRITIS
     Dosage: 1 INJECTION
     Route: 058
     Dates: start: 20100802

REACTIONS (5)
  - INJECTION SITE PRURITUS [None]
  - GROIN PAIN [None]
  - INJECTION SITE ERYTHEMA [None]
  - ARTHRALGIA [None]
  - INJECTION SITE HAEMATOMA [None]
